FAERS Safety Report 4923359-5 (Version None)
Quarter: 2006Q1

REPORT INFORMATION
  Report Type: 
  Country: None (occurrence: None)
  Receive Date: 20060227
  Receipt Date: 20050928
  Transmission Date: 20060701
  Serious: Yes (Hospitalization)
  Sender: FDA-Public Use
  Company Number: JP-BRISTOL-MYERS SQUIBB COMPANY-13127147

PATIENT
  Age: 65 Year
  Sex: Male

DRUGS (6)
  1. BRIPLATIN [Suspect]
     Indication: GASTRIC CANCER
     Route: 042
     Dates: start: 20050711, end: 20050715
  2. MAXIPIME [Suspect]
     Route: 042
     Dates: start: 20050720
  3. FLUOROURACIL [Suspect]
     Indication: GASTRIC CANCER
     Route: 042
     Dates: start: 20050711, end: 20050715
  4. SOLITA-T [Concomitant]
     Route: 042
  5. NASEA [Concomitant]
     Route: 042
  6. ISOTONIC SODIUM CHLORIDE [Concomitant]
     Route: 041
     Dates: start: 20050704, end: 20050708

REACTIONS (6)
  - ABDOMINAL PAIN [None]
  - BONE MARROW FAILURE [None]
  - DIARRHOEA [None]
  - ILEUS [None]
  - NAUSEA [None]
  - VOMITING [None]
